FAERS Safety Report 4749214-1 (Version None)
Quarter: 2005Q3

REPORT INFORMATION
  Report Type: 
  Country: None (occurrence: None)
  Receive Date: 20050819
  Receipt Date: 20050810
  Transmission Date: 20060218
  Serious: Yes (Hospitalization)
  Sender: FDA-Public Use
  Company Number: GB-BRISTOL-MYERS SQUIBB COMPANY-13078233

PATIENT
  Sex: Male

DRUGS (5)
  1. APROVEL [Suspect]
     Indication: BLOOD PRESSURE
     Route: 048
     Dates: start: 19930101, end: 20050705
  2. ASASANTIN RETARD [Interacting]
  3. ASPIRIN [Concomitant]
  4. ADALAT CC [Concomitant]
  5. BENDROFLUMETHIAZIDE [Concomitant]

REACTIONS (2)
  - DRUG INTERACTION [None]
  - RENAL FAILURE [None]
